FAERS Safety Report 22034067 (Version 1)
Quarter: 2023Q1

REPORT INFORMATION
  Report Type: Spontaneous
  Country: US (occurrence: None)
  Receive Date: 20230222
  Receipt Date: 20230222
  Transmission Date: 20230418
  Serious: Yes (unspecified)
  Sender: FDA-Public Use
  Company Number: None

PATIENT
  Age: 48 Year
  Sex: Male
  Weight: 59.3 kg

DRUGS (3)
  1. STELARA [Suspect]
     Active Substance: USTEKINUMAB
     Indication: Crohn^s disease
     Dosage: OTHER FREQUENCY : ONE TIME;?
     Route: 041
     Dates: start: 20230222, end: 20230222
  2. 0.9% Sodium Chloride 250 ml [Concomitant]
     Dates: start: 20230222, end: 20230222
  3. LORATADINE [Concomitant]
     Active Substance: LORATADINE
     Dates: start: 20220222, end: 20230222

REACTIONS (3)
  - Muscle spasms [None]
  - Chest pain [None]
  - Infusion related reaction [None]

NARRATIVE: CASE EVENT DATE: 20230222
